FAERS Safety Report 11146713 (Version 2)
Quarter: 2015Q2

REPORT INFORMATION
  Report Type: Spontaneous
  Country: JP (occurrence: JP)
  Receive Date: 20150528
  Receipt Date: 20150605
  Transmission Date: 20150821
  Serious: Yes (Hospitalization, Other)
  Sender: FDA-Public Use
  Company Number: JP-PFIZER INC-2015175399

PATIENT
  Age: 79 Year
  Sex: Female

DRUGS (3)
  1. LOXOPROFEN SODIUM [Concomitant]
     Active Substance: LOXOPROFEN SODIUM
     Dosage: UNK
     Route: 048
     Dates: start: 201505, end: 201505
  2. FAMOTIDINE. [Concomitant]
     Active Substance: FAMOTIDINE
     Dosage: UNK
     Route: 048
     Dates: start: 201505, end: 201505
  3. LYRICA [Suspect]
     Active Substance: PREGABALIN
     Indication: NEURALGIA
     Dosage: 150 MG, DAILY
     Route: 048
     Dates: start: 20150310, end: 20150507

REACTIONS (8)
  - Alanine aminotransferase increased [Recovered/Resolved]
  - Pyrexia [Unknown]
  - Hepatic function abnormal [Recovered/Resolved]
  - Blood bilirubin increased [Unknown]
  - Asthenia [Unknown]
  - Malaise [Unknown]
  - Aspartate aminotransferase increased [Recovered/Resolved]
  - Headache [Unknown]

NARRATIVE: CASE EVENT DATE: 201505
